FAERS Safety Report 7166574-5 (Version None)
Quarter: 2010Q4

REPORT INFORMATION
  Report Type: 
  Country: None (occurrence: None)
  Receive Date: 20101216
  Receipt Date: 20101213
  Transmission Date: 20110411
  Serious: Yes (Death, Hospitalization, Other)
  Sender: FDA-Public Use
  Company Number: PHHY2010CA73651

PATIENT
  Sex: Female

DRUGS (2)
  1. SANDOSTATIN LAR [Suspect]
     Indication: METASTATIC NEOPLASM
     Dosage: 40 MG, QMO
     Route: 030
     Dates: start: 20081030
  2. SANDOSTATIN LAR [Suspect]
     Dosage: 40 MG EVERY 4 WEEK
     Route: 030
     Dates: end: 20101028

REACTIONS (5)
  - DEATH [None]
  - JAUNDICE [None]
  - LETHARGY [None]
  - MALIGNANT NEOPLASM PROGRESSION [None]
  - PALLIATIVE CARE [None]
